FAERS Safety Report 8596335-1 (Version None)
Quarter: 2012Q3

REPORT INFORMATION
  Report Type: 
  Country: None (occurrence: None)
  Receive Date: 20120815
  Receipt Date: 20120815
  Transmission Date: 20120928
  Serious: Yes (Other)
  Sender: FDA-Public Use
  Company Number: DE-BAYER-2012-083098

PATIENT
  Age: 63 Year
  Sex: Male
  Weight: 92 kg

DRUGS (1)
  1. LEVITRA [Suspect]
     Dosage: 1/2 OR 1/4 TABLET
     Route: 048
     Dates: start: 20090101

REACTIONS (1)
  - AMAUROSIS [None]
